FAERS Safety Report 8379029-7 (Version None)
Quarter: 2012Q2

REPORT INFORMATION
  Report Type: 
  Country: None (occurrence: None)
  Receive Date: 20120522
  Receipt Date: 20120522
  Transmission Date: 20120825
  Serious: Yes (Death, Life-Threatening, Hospitalization)
  Sender: FDA-Public Use
  Company Number: None

PATIENT
  Age: 44 Year
  Sex: Female
  Weight: 94 kg

DRUGS (8)
  1. VANCOMYCIN [Concomitant]
  2. TOBRAMYCIN [Concomitant]
  3. CLOFARABINE [Suspect]
     Indication: ACUTE MYELOID LEUKAEMIA
     Dosage: 80 MG FOR 5 DAYS IV BOLUS
     Route: 040
     Dates: start: 20120414, end: 20120415
  4. MEROPENEM [Concomitant]
  5. COLISTIN [Concomitant]
  6. CYTARABINE [Concomitant]
  7. LINEZOLID [Concomitant]
  8. STEROIDS [Concomitant]

REACTIONS (16)
  - ATRIAL FIBRILLATION [None]
  - DYSPNOEA [None]
  - ERYTHEMA [None]
  - RENAL IMPAIRMENT [None]
  - SKIN INFECTION [None]
  - BACTERAEMIA [None]
  - SKIN HYPERPIGMENTATION [None]
  - OEDEMA [None]
  - CAPILLARY LEAK SYNDROME [None]
  - SKIN EXFOLIATION [None]
  - DIARRHOEA [None]
  - FLUID OVERLOAD [None]
  - RASH [None]
  - TONGUE ULCERATION [None]
  - MUCOSAL ULCERATION [None]
  - SYSTEMIC CANDIDA [None]
